FAERS Safety Report 10023386 (Version 1)
Quarter: 2014Q1

REPORT INFORMATION
  Report Type: Spontaneous
  Country: CA (occurrence: CA)
  Receive Date: 20140320
  Receipt Date: 20140320
  Transmission Date: 20141002
  Serious: Yes (Other)
  Sender: FDA-Public Use
  Company Number: CA-ROCHE-1365224

PATIENT
  Sex: Female

DRUGS (4)
  1. HERCEPTIN [Suspect]
     Indication: BREAST CANCER METASTATIC
     Route: 042
     Dates: start: 201201
  2. TAXOL [Concomitant]
     Route: 065
     Dates: start: 201201, end: 20120428
  3. ERIBULIN [Concomitant]
     Route: 065
     Dates: start: 20140311
  4. MAXERAN [Concomitant]

REACTIONS (1)
  - Metastases to central nervous system [Unknown]
